FAERS Safety Report 25402852 (Version 2)
Quarter: 2025Q2

REPORT INFORMATION
  Report Type: Spontaneous
  Country: RU (occurrence: RU)
  Receive Date: 20250605
  Receipt Date: 20250619
  Transmission Date: 20250717
  Serious: Yes (Other)
  Sender: NOVARTIS
  Company Number: RU-002147023-NVSC2025RU088365

PATIENT
  Sex: Female

DRUGS (2)
  1. DABRAFENIB [Suspect]
     Active Substance: DABRAFENIB
     Indication: Product used for unknown indication
     Dosage: 150 MG, BID
     Route: 065
     Dates: start: 202401, end: 202501
  2. TRAMETINIB [Suspect]
     Active Substance: TRAMETINIB
     Indication: Product used for unknown indication
     Dosage: 2 MG, QD
     Route: 065
     Dates: start: 202401, end: 202501

REACTIONS (9)
  - Interstitial lung disease [Unknown]
  - Cervical cyst [Unknown]
  - Hepatic steatosis [Unknown]
  - Hepatic cyst [Unknown]
  - Seroma [Unknown]
  - Lymphadenopathy mediastinal [Unknown]
  - Hepatosplenomegaly [Unknown]
  - Hepatic steatosis [Unknown]
  - Pancreatic disorder [Unknown]

NARRATIVE: CASE EVENT DATE: 20240222
